FAERS Safety Report 14896272 (Version 1)
Quarter: 2018Q2

REPORT INFORMATION
  Report Type: Spontaneous
  Country: ES (occurrence: ES)
  Receive Date: 20180515
  Receipt Date: 20180515
  Transmission Date: 20180711
  Serious: Yes (Hospitalization)
  Sender: FDA-Public Use
  Company Number: ES-ACCORD-066985

PATIENT
  Age: 57 Year

DRUGS (6)
  1. BORTEZOMIBE [Interacting]
     Active Substance: BORTEZOMIB
     Indication: LYMPHOMA
     Route: 042
     Dates: start: 20161219, end: 20161227
  2. CYCLOPHOSPHAMIDE/CYCLOPHOSPHAMIDE MONOHYDRATE [Interacting]
     Active Substance: CYCLOPHOSPHAMIDE
     Indication: LYMPHOMA
     Route: 042
     Dates: start: 20161219, end: 20161227
  3. ETOPOSIDE. [Suspect]
     Active Substance: ETOPOSIDE
     Indication: LYMPHOMA
     Route: 042
     Dates: start: 20161219, end: 20161227
  4. VINCRISTINE [Interacting]
     Active Substance: VINCRISTINE
     Indication: LYMPHOMA
     Route: 042
     Dates: start: 20161219, end: 20161227
  5. METHYLPREDNISOLONE. [Interacting]
     Active Substance: METHYLPREDNISOLONE
     Indication: LYMPHOMA
     Route: 042
     Dates: start: 20161219, end: 20161227
  6. DOXORUBICIN [Interacting]
     Active Substance: DOXORUBICIN
     Indication: LYMPHOMA
     Route: 042
     Dates: start: 20161219, end: 20161227

REACTIONS (2)
  - Influenza [Recovered/Resolved]
  - Drug interaction [Unknown]

NARRATIVE: CASE EVENT DATE: 20161230
